FAERS Safety Report 13467319 (Version 1)
Quarter: 2017Q2

REPORT INFORMATION
  Report Type: Spontaneous
  Country: US (occurrence: US)
  Receive Date: 20170421
  Receipt Date: 20170421
  Transmission Date: 20170830
  Serious: No
  Sender: FDA-Public Use
  Company Number: US-BAYER-2017-076434

PATIENT
  Age: 58 Year
  Sex: Female
  Weight: 57.96 kg

DRUGS (2)
  1. CLARITIN [Suspect]
     Active Substance: LORATADINE
     Indication: URTICARIA
     Dosage: 2 TEASPOONS A DAY TEASPOON
     Route: 048
     Dates: start: 20170418, end: 20170419
  2. ATROVENT [Concomitant]
     Active Substance: IPRATROPIUM BROMIDE

REACTIONS (4)
  - Circumstance or information capable of leading to medication error [Unknown]
  - Therapeutic response unexpected [Unknown]
  - Nervousness [Not Recovered/Not Resolved]
  - Product use in unapproved indication [Unknown]

NARRATIVE: CASE EVENT DATE: 20170418
